FAERS Safety Report 6882939-0 (Version None)
Quarter: 2010Q3

REPORT INFORMATION
  Report Type: 
  Country: None (occurrence: None)
  Receive Date: 20100702
  Receipt Date: 20090603
  Transmission Date: 20110219
  Serious: Yes (Other)
  Sender: FDA-Public Use
  Company Number: 2009175733

PATIENT
  Sex: Female
  Weight: 74.8 kg

DRUGS (3)
  1. ZOLOFT [Suspect]
     Dosage: 50 MG, 1X.DAY
  2. METFORMIN HCL [Concomitant]
  3. CARDIOVASCULAR SYSTEM DRUGS [Concomitant]

REACTIONS (1)
  - SENSORY DISTURBANCE [None]
